FAERS Safety Report 9307959 (Version 1)
Quarter: 2013Q2

REPORT INFORMATION
  Report Type: Spontaneous
  Country: US (occurrence: US)
  Receive Date: 20130524
  Receipt Date: 20130524
  Transmission Date: 20140414
  Serious: Yes (Other)
  Sender: FDA-Public Use
  Company Number: US-ASTELLAS-2013US005391

PATIENT
  Sex: Male

DRUGS (2)
  1. PROGRAF [Suspect]
     Indication: PRODUCT USED FOR UNKNOWN INDICATION
     Dosage: UNK
     Route: 065
  2. SODIUM THIOSULFATE [Interacting]
     Indication: CALCIPHYLAXIS
     Dosage: UNK
     Route: 065

REACTIONS (3)
  - Calciphylaxis [Unknown]
  - Blood pH decreased [Unknown]
  - Drug interaction [Unknown]
